FAERS Safety Report 7626983-4 (Version None)
Quarter: 2011Q3

REPORT INFORMATION
  Report Type: 
  Country: None (occurrence: None)
  Receive Date: 20110714
  Receipt Date: 20110630
  Transmission Date: 20111222
  Serious: Yes (Other)
  Sender: FDA-Public Use
  Company Number: USW201106-000006

PATIENT
  Age: 60 Year
  Sex: Female
  Weight: 59.8748 kg

DRUGS (2)
  1. BOTULINUM TOXIN [Suspect]
     Indication: BACK PAIN
     Dates: start: 20040101
  2. BUPIVICAINE (BUPIVACAINE HYDROCHLORIDE) [Concomitant]

REACTIONS (1)
  - UNEVALUABLE EVENT [None]
